FAERS Safety Report 14370596 (Version 1)
Quarter: 2018Q1

REPORT INFORMATION
  Report Type: Spontaneous
  Country: US (occurrence: US)
  Receive Date: 20180110
  Receipt Date: 20180110
  Transmission Date: 20180509
  Serious: No
  Sender: FDA-Public Use
  Company Number: US-BAYER-2018-004824

PATIENT
  Age: 26 Year
  Sex: Female

DRUGS (2)
  1. KYLEENA [Suspect]
     Active Substance: LEVONORGESTREL
     Indication: MENORRHAGIA
     Dosage: 19.5 MCG/24HR, CONT
     Route: 015
     Dates: start: 20180108
  2. KYLEENA [Suspect]
     Active Substance: LEVONORGESTREL
     Indication: PAIN

REACTIONS (2)
  - Benign neoplasm [None]
  - Neurofibromatosis [None]
